FAERS Safety Report 6314922-8 (Version None)
Quarter: 2009Q3

REPORT INFORMATION
  Report Type: 
  Country: None (occurrence: None)
  Receive Date: 20090819
  Receipt Date: 20090817
  Transmission Date: 20100115
  Serious: Yes (Life-Threatening)
  Sender: FDA-Public Use
  Company Number: A0799480A

PATIENT
  Sex: Female
  Weight: 76 kg

DRUGS (4)
  1. TYKERB [Suspect]
     Dosage: 1250MG CUMULATIVE DOSE
     Route: 048
     Dates: start: 20090615, end: 20090728
  2. CAPECITABINE [Concomitant]
     Dosage: 1000MG TWICE PER DAY
     Route: 065
     Dates: start: 20090615
  3. TAXOL [Concomitant]
     Route: 065
  4. HERCEPTIN [Concomitant]
     Route: 065

REACTIONS (1)
  - BREAST CANCER METASTATIC [None]
